FAERS Safety Report 25373611 (Version 1)
Quarter: 2025Q2

REPORT INFORMATION
  Report Type: Spontaneous
  Country: US (occurrence: US)
  Receive Date: 20250529
  Receipt Date: 20250529
  Transmission Date: 20250716
  Serious: Yes (Hospitalization)
  Sender: ELI LILLY AND COMPANY
  Company Number: US-ELI_LILLY_AND_COMPANY-US202505018561

PATIENT
  Age: 0 Year

DRUGS (34)
  1. REYVOW [Suspect]
     Active Substance: LASMIDITAN
     Indication: Migraine
     Route: 064
     Dates: start: 2021, end: 202407
  2. REYVOW [Suspect]
     Active Substance: LASMIDITAN
     Indication: Migraine
     Route: 064
     Dates: start: 2021, end: 202407
  3. BOTOX [Suspect]
     Active Substance: ONABOTULINUMTOXINA
     Indication: Migraine prophylaxis
     Route: 064
     Dates: start: 2016
  4. BOTOX [Suspect]
     Active Substance: ONABOTULINUMTOXINA
     Indication: Migraine prophylaxis
     Route: 064
     Dates: start: 2016
  5. ELETRIPTAN [Suspect]
     Active Substance: ELETRIPTAN
     Indication: Migraine
     Route: 064
     Dates: start: 2021
  6. ELETRIPTAN [Suspect]
     Active Substance: ELETRIPTAN
     Indication: Migraine
     Route: 064
     Dates: start: 2021
  7. AUGMENTIN [Concomitant]
     Active Substance: AMOXICILLIN\CLAVULANATE POTASSIUM
     Indication: Sinusitis
     Dosage: 500 MG, BID
     Route: 064
     Dates: start: 202409, end: 202409
  8. AUGMENTIN [Concomitant]
     Active Substance: AMOXICILLIN\CLAVULANATE POTASSIUM
     Indication: Sinusitis
     Dosage: 500 MG, BID
     Route: 064
     Dates: start: 202409, end: 202409
  9. BUDESONIDE [Concomitant]
     Active Substance: BUDESONIDE
     Indication: Sinusitis
     Route: 064
  10. BUDESONIDE [Concomitant]
     Active Substance: BUDESONIDE
     Indication: Sinusitis
     Route: 064
  11. CIPROFLOXACIN HYDROCHLORIDE [Concomitant]
     Active Substance: CIPROFLOXACIN HYDROCHLORIDE
     Indication: Ear infection
     Route: 064
     Dates: start: 202405, end: 202405
  12. CIPROFLOXACIN HYDROCHLORIDE [Concomitant]
     Active Substance: CIPROFLOXACIN HYDROCHLORIDE
     Indication: Ear infection
     Route: 064
     Dates: start: 202405, end: 202405
  13. LAGEVRIO [Concomitant]
     Active Substance: MOLNUPIRAVIR
     Indication: COVID-19
     Dosage: 200 MG, BID (EVERY 12 HOURS)
     Route: 064
     Dates: start: 202405, end: 202405
  14. LAGEVRIO [Concomitant]
     Active Substance: MOLNUPIRAVIR
     Indication: COVID-19
     Dosage: 200 MG, BID (EVERY 12 HOURS)
     Route: 064
     Dates: start: 202405, end: 202405
  15. PROPRANOLOL [Concomitant]
     Active Substance: PROPRANOLOL HYDROCHLORIDE
     Indication: Bruxism
     Dosage: 20 MG, BID
     Route: 064
     Dates: start: 2010
  16. PROPRANOLOL [Concomitant]
     Active Substance: PROPRANOLOL HYDROCHLORIDE
     Indication: Bruxism
     Dosage: 20 MG, BID
     Route: 064
     Dates: start: 2010
  17. SEROQUEL [Concomitant]
     Active Substance: QUETIAPINE FUMARATE
     Indication: Bipolar disorder
     Dosage: 250 MG, DAILY (QD)
     Route: 064
     Dates: start: 2020
  18. SEROQUEL [Concomitant]
     Active Substance: QUETIAPINE FUMARATE
     Indication: Bipolar disorder
     Dosage: 250 MG, DAILY (QD)
     Route: 064
     Dates: start: 2020
  19. CLARITIN [Concomitant]
     Active Substance: LORATADINE
     Indication: Seasonal allergy
     Dosage: 10 MG, DAILY (QD)
     Route: 064
     Dates: start: 202312
  20. CLARITIN [Concomitant]
     Active Substance: LORATADINE
     Indication: Seasonal allergy
     Dosage: 10 MG, DAILY (QD)
     Route: 064
     Dates: start: 202312
  21. CLARITIN [Concomitant]
     Active Substance: LORATADINE
     Indication: Hypersensitivity
  22. CLARITIN [Concomitant]
     Active Substance: LORATADINE
     Indication: Hypersensitivity
  23. EUFLEXXA [Concomitant]
     Active Substance: HYALURONATE SODIUM
     Indication: Osteoarthritis
     Route: 064
     Dates: start: 2014
  24. EUFLEXXA [Concomitant]
     Active Substance: HYALURONATE SODIUM
     Indication: Osteoarthritis
     Route: 064
     Dates: start: 2014
  25. PANTOPRAZOLE [Concomitant]
     Active Substance: PANTOPRAZOLE
     Indication: Gastritis
     Dosage: 40 MG, DAILY (QD)
     Route: 064
     Dates: start: 202403
  26. PANTOPRAZOLE [Concomitant]
     Active Substance: PANTOPRAZOLE
     Indication: Gastritis
     Dosage: 40 MG, DAILY (QD)
     Route: 064
     Dates: start: 202403
  27. HYQVIA [Concomitant]
     Active Substance: HUMAN IMMUNOGLOBULIN G\HYALURONIDASE (HUMAN RECOMBINANT)
     Indication: Primary immunodeficiency syndrome
     Dosage: UNK, MONTHLY (1/M)
     Route: 064
     Dates: start: 2016
  28. HYQVIA [Concomitant]
     Active Substance: HUMAN IMMUNOGLOBULIN G\HYALURONIDASE (HUMAN RECOMBINANT)
     Indication: Primary immunodeficiency syndrome
     Dosage: UNK, MONTHLY (1/M)
     Route: 064
     Dates: start: 2016
  29. TRETINOIN [Concomitant]
     Active Substance: TRETINOIN
     Indication: Acne
     Dosage: 0.05 %, 3/W
     Route: 064
     Dates: start: 2023, end: 202407
  30. TRETINOIN [Concomitant]
     Active Substance: TRETINOIN
     Indication: Acne
     Dosage: 0.05 %, 3/W
     Route: 064
     Dates: start: 2023, end: 202407
  31. CLINDAMYCIN [Concomitant]
     Active Substance: CLINDAMYCIN
     Indication: Acne
     Dosage: 1 %, BID
     Route: 064
     Dates: start: 2023
  32. CLINDAMYCIN [Concomitant]
     Active Substance: CLINDAMYCIN
     Indication: Acne
     Dosage: 1 %, BID
     Route: 064
     Dates: start: 2023
  33. FINACEA [Concomitant]
     Active Substance: AZELAIC ACID
     Indication: Acne
     Dosage: 15 %, DAILY (QD)
     Route: 064
     Dates: start: 20241001
  34. FINACEA [Concomitant]
     Active Substance: AZELAIC ACID
     Indication: Acne
     Dosage: 15 %, DAILY (QD)
     Route: 064
     Dates: start: 20241001

REACTIONS (4)
  - Nonreassuring foetal heart rate pattern [Recovered/Resolved]
  - Hypoglycaemia neonatal [Recovered/Resolved]
  - Hypothermia neonatal [Recovered/Resolved]
  - Drug exposure before pregnancy [Recovered/Resolved]

NARRATIVE: CASE EVENT DATE: 20250503
